FAERS Safety Report 9779112 (Version 1)
Quarter: 2013Q4

REPORT INFORMATION
  Report Type: Spontaneous
  Country: US (occurrence: US)
  Receive Date: 20131223
  Receipt Date: 20131223
  Transmission Date: 20140711
  Serious: No
  Sender: FDA-Public Use
  Company Number: US-ENDO PHARMACEUTICALS INC.-OPCR20130427

PATIENT
  Sex: Male

DRUGS (3)
  1. OPANA ER [Suspect]
     Indication: PAIN
     Dosage: UNK
     Route: 048
     Dates: start: 201210, end: 2013
  2. HYDROCODONE BITARTRATE / ACETAMINOPHEN 10MG/500MG [Concomitant]
     Indication: BREAKTHROUGH PAIN
     Dosage: 40/2000 MG
     Route: 048
     Dates: start: 2009, end: 20131121
  3. MORPHINE PUMP [Concomitant]
     Indication: PAIN
     Dosage: UNK
     Dates: start: 20130821

REACTIONS (1)
  - Drug ineffective [Recovered/Resolved]
